FAERS Safety Report 7135844-9 (Version None)
Quarter: 2010Q4

REPORT INFORMATION
  Report Type: 
  Country: None (occurrence: None)
  Receive Date: 20101203
  Receipt Date: 20101122
  Transmission Date: 20110411
  Serious: Yes (Death)
  Sender: FDA-Public Use
  Company Number: KR-GENENTECH-310217

PATIENT
  Age: 24 Year
  Sex: Female

DRUGS (4)
  1. RITUXIMAB [Suspect]
     Indication: GRAFT VERSUS HOST DISEASE
     Dosage: 375 MG/M2, 1/WEEK
     Route: 042
  2. RITUXIMAB [Suspect]
     Dosage: 375 MG/M2, 1/MONTH
     Route: 042
  3. CYCLOSPORINE [Suspect]
     Indication: GRAFT VERSUS HOST DISEASE
     Dosage: 150 MG, UNK
     Route: 065
  4. MYCOPHENOLATE MOFETIL [Suspect]
     Indication: GRAFT VERSUS HOST DISEASE
     Dosage: 750 MG, UNK
     Route: 065

REACTIONS (1)
  - PULMONARY HAEMORRHAGE [None]
